FAERS Safety Report 9458200 (Version 1)
Quarter: 2013Q3

REPORT INFORMATION
  Report Type: Report from Study
  Country: US (occurrence: US)
  Receive Date: 20130814
  Receipt Date: 20130814
  Transmission Date: 20140515
  Serious: Yes (Other)
  Sender: FDA-Public Use
  Company Number: US-PFIZER INC-2013217492

PATIENT
  Age: 65 Year
  Sex: Female
  Weight: 68.48 kg

DRUGS (16)
  1. ENBREL [Suspect]
     Dosage: 50 MG, QWK
     Route: 058
  2. METHOTREXATE SODIUM [Suspect]
     Dosage: UNK
  3. FENOFIBRATE [Concomitant]
     Dosage: 48 MG, UNK
  4. CELEBREX [Concomitant]
     Dosage: 100 MG, UNK
  5. VITAMIN D [Concomitant]
     Dosage: 400 UNIT, UNK
  6. VITAMIN C [Concomitant]
     Dosage: 500 MG, UNK
  7. ZOLOFT [Concomitant]
     Dosage: 100 MG, UNK
  8. LEFLUNOMIDE [Concomitant]
     Dosage: 20 MG, UNK
  9. TRAMADOL HCL [Concomitant]
     Dosage: 50 MG, UNK
  10. RAMIPRIL [Concomitant]
     Dosage: 2.5 MG, UNK
  11. HYDROXYCHLOROQUINE [Concomitant]
     Dosage: 200 MG, UNK
  12. SYNTHROID [Concomitant]
     Dosage: 100 UG, UNK
  13. FOLIC ACID [Concomitant]
     Dosage: 5 MG, UNK
  14. METFORMIN [Concomitant]
     Dosage: 1000 MG, UNK
  15. GLYBURIDE [Concomitant]
     Dosage: 1.25 MG, UNK
  16. REMICADE [Concomitant]
     Dosage: UNK

REACTIONS (5)
  - Aphagia [Recovered/Resolved]
  - Stomatitis [Recovered/Resolved]
  - Oral mucosal erythema [Recovered/Resolved]
  - Oral pain [Recovered/Resolved]
  - Mucosal inflammation [Recovered/Resolved]
